FAERS Safety Report 7865006-9 (Version None)
Quarter: 2011Q4

REPORT INFORMATION
  Report Type: 
  Country: None (occurrence: None)
  Receive Date: 20111028
  Receipt Date: 20100929
  Transmission Date: 20120403
  Serious: No
  Sender: FDA-Public Use
  Company Number: US-GLAXOSMITHKLINE-A0884030A

PATIENT
  Age: 70 Year
  Sex: Female

DRUGS (11)
  1. LANTUS [Concomitant]
  2. HUMALOG [Concomitant]
  3. IRON [Concomitant]
  4. WATER PILL [Concomitant]
  5. POTASSIUM [Concomitant]
  6. LIPITOR [Concomitant]
  7. METFORMIN HCL [Concomitant]
  8. NEXIUM [Concomitant]
  9. LYRICA [Concomitant]
  10. ADVAIR DISKUS 100/50 [Suspect]
     Indication: ASTHMA
     Dosage: 1PUFF TWICE PER DAY
     Route: 055
  11. INSULIN [Concomitant]

REACTIONS (3)
  - PRODUCT QUALITY ISSUE [None]
  - OVERDOSE [None]
  - DYSPNOEA [None]
